FAERS Safety Report 4514429-4 (Version None)
Quarter: 2004Q4

REPORT INFORMATION
  Report Type: 
  Country: None (occurrence: None)
  Receive Date: 20041126
  Receipt Date: 20041110
  Transmission Date: 20050328
  Serious: Yes (Hospitalization, Other)
  Sender: FDA-Public Use
  Company Number: 2004IM000948

PATIENT
  Age: 40 Year
  Sex: Female
  Weight: 89.7 kg

DRUGS (12)
  1. INFERGEN [Suspect]
     Indication: HEPATITIS C
     Dosage: 15 UG; QD; SUBCUTANEOUS
     Route: 058
     Dates: start: 20040901
  2. RIBAVIRIN [Suspect]
     Indication: HEPATITIS C
     Dosage: 1200 MG; QD; ORAL
     Route: 048
     Dates: start: 20040901
  3. ORTHO TRI-CYCLEN [Concomitant]
  4. CELEXA [Concomitant]
  5. HYDROCODONE [Concomitant]
  6. ZANAFLEX [Concomitant]
  7. SYNTHROID [Concomitant]
  8. NEXIUM [Concomitant]
  9. PHENERGAN [Concomitant]
  10. ZOFRAN [Concomitant]
  11. QUININE [Concomitant]
  12. MARINOL [Concomitant]

REACTIONS (6)
  - ANXIETY [None]
  - BODY TEMPERATURE INCREASED [None]
  - CONDITION AGGRAVATED [None]
  - DEPRESSION [None]
  - HYPOTENSION [None]
  - PSYCHOTIC DISORDER [None]
